FAERS Safety Report 7975684-1 (Version None)
Quarter: 2011Q4

REPORT INFORMATION
  Report Type: 
  Country: None (occurrence: None)
  Receive Date: 20111213
  Receipt Date: 20111006
  Transmission Date: 20120403
  Serious: No
  Sender: FDA-Public Use
  Company Number: US-AMGEN-USASP2011051631

PATIENT
  Age: 62 Year
  Sex: Female

DRUGS (2)
  1. ENBREL [Suspect]
     Indication: RHEUMATOID ARTHRITIS
     Dosage: 50 MG, QWK
     Dates: start: 20110707
  2. ARAVA [Concomitant]
     Dates: start: 20110901

REACTIONS (4)
  - INJECTION SITE HAEMORRHAGE [None]
  - RASH [None]
  - DIARRHOEA [None]
  - FEELING HOT [None]
